FAERS Safety Report 17371786 (Version 5)
Quarter: 2020Q1

REPORT INFORMATION
  Report Type: Spontaneous
  Country: US (occurrence: US)
  Receive Date: 20200205
  Receipt Date: 20200218
  Transmission Date: 20200409
  Serious: Yes (Hospitalization, Other)
  Sender: FDA-Public Use
  Company Number: US-UNITED THERAPEUTICS-UNT-2020-001821

PATIENT
  Age: 59 Year
  Sex: Female
  Weight: 46.32 kg

DRUGS (1)
  1. TYVASO [Suspect]
     Active Substance: TREPROSTINIL
     Indication: PULMONARY ARTERIAL HYPERTENSION
     Dosage: 18-54 ?G, QID
     Dates: start: 20180502

REACTIONS (8)
  - Pancreatitis acute [Unknown]
  - Chest pain [Unknown]
  - Pulmonary hypertension [Unknown]
  - Gastrointestinal disorder [Unknown]
  - Heart rate increased [Unknown]
  - Asthenia [Unknown]
  - Retching [Unknown]
  - Malaise [Unknown]

NARRATIVE: CASE EVENT DATE: 202001
